FAERS Safety Report 25846610 (Version 1)
Quarter: 2025Q3

REPORT INFORMATION
  Report Type: Report from Study
  Country: EU (occurrence: EU)
  Receive Date: 20250925
  Receipt Date: 20250925
  Transmission Date: 20251020
  Serious: Yes (Other)
  Sender: AUROBINDO
  Company Number: EU-EMA-DD-20200619-prabhakar_d-212352

PATIENT
  Age: 84 Year
  Sex: Male

DRUGS (3)
  1. MYCOPHENOLATE MOFETIL [Suspect]
     Active Substance: MYCOPHENOLATE MOFETIL
     Indication: Immune thrombocytopenia
     Route: 065
  2. RITUXIMAB [Suspect]
     Active Substance: RITUXIMAB
     Indication: Immune thrombocytopenia
     Route: 042
  3. VINBLASTINE [Suspect]
     Active Substance: VINBLASTINE
     Indication: Immune thrombocytopenia
     Route: 065

REACTIONS (4)
  - Lung disorder [Recovered/Resolved]
  - Pneumocystis jirovecii infection [Recovered/Resolved]
  - Bronchitis [Recovered/Resolved]
  - Postoperative wound infection [Recovered/Resolved]
